FAERS Safety Report 13304625 (Version 1)
Quarter: 2017Q1

REPORT INFORMATION
  Report Type: Report from Study
  Country: DE (occurrence: DE)
  Receive Date: 20170308
  Receipt Date: 20170308
  Transmission Date: 20170428
  Serious: Yes (Hospitalization)
  Sender: FDA-Public Use
  Company Number: DE-ROCHE-1902613

PATIENT
  Age: 55 Year
  Sex: Female

DRUGS (2)
  1. METHOTREXATE. [Suspect]
     Active Substance: METHOTREXATE
     Indication: RHEUMATOID ARTHRITIS
     Route: 065
  2. RITUXIMAB [Suspect]
     Active Substance: RITUXIMAB
     Indication: RHEUMATOID ARTHRITIS
     Dosage: ON 26/SEP/2016, SHE RECEIVED LAST DOSE OF IV RITUXIMAB 1000 MG PRIOR TO THE SURGERY
     Route: 042

REACTIONS (1)
  - Synovectomy [Not Recovered/Not Resolved]

NARRATIVE: CASE EVENT DATE: 20170130
